FAERS Safety Report 14365310 (Version 1)
Quarter: 2018Q1

REPORT INFORMATION
  Report Type: Spontaneous
  Country: TR (occurrence: TR)
  Receive Date: 20180108
  Receipt Date: 20180108
  Transmission Date: 20180509
  Serious: Yes (Other)
  Sender: FDA-Public Use
  Company Number: TR-NOVOPROD-579687

PATIENT
  Age: 45 Year
  Sex: Female
  Weight: 79 kg

DRUGS (1)
  1. NOVORAPID [Suspect]
     Active Substance: INSULIN ASPART
     Indication: TYPE 2 DIABETES MELLITUS
     Dosage: 72 U, QD
     Route: 058
     Dates: start: 20161228

REACTIONS (4)
  - Blood glucose increased [Unknown]
  - Weight increased [Unknown]
  - Eye haemorrhage [Unknown]
  - Visual impairment [Unknown]
